FAERS Safety Report 19265406 (Version 1)
Quarter: 2021Q2

REPORT INFORMATION
  Report Type: Spontaneous
  Country: US (occurrence: US)
  Receive Date: 20210517
  Receipt Date: 20210517
  Transmission Date: 20210717
  Serious: Yes (Other)
  Sender: FDA-Public Use
  Company Number: US-ALKERMES INC.-ALK-2021-002453

PATIENT
  Age: 60 Year
  Sex: Male
  Weight: 86.17 kg

DRUGS (2)
  1. VIVITROL [Suspect]
     Active Substance: NALTREXONE
     Dosage: 380 MILLIGRAM, QMO
     Route: 030
  2. VIVITROL [Suspect]
     Active Substance: NALTREXONE
     Indication: ALCOHOLISM
     Dosage: 380 MILLIGRAM, QMO
     Route: 030
     Dates: start: 2021, end: 2021

REACTIONS (4)
  - Colon operation [Recovered/Resolved]
  - Alcohol use [Recovered/Resolved]
  - Alcoholism [Unknown]
  - Malaise [Unknown]

NARRATIVE: CASE EVENT DATE: 202105
